FAERS Safety Report 24327453 (Version 1)
Quarter: 2024Q3

REPORT INFORMATION
  Report Type: Spontaneous
  Country: US (occurrence: None)
  Receive Date: 20240916
  Receipt Date: 20240916
  Transmission Date: 20241016
  Serious: Yes (Hospitalization)
  Sender: Public
  Company Number: None

PATIENT
  Age: 70 Year
  Sex: Female

DRUGS (1)
  1. TYMLOS [Suspect]
     Active Substance: ABALOPARATIDE
     Indication: Osteoporosis
     Dosage: ?80 UG DAILY SUBCUTANEOUS
     Route: 058
     Dates: start: 20240328

REACTIONS (6)
  - Fall [None]
  - Speech disorder [None]
  - Agitation [None]
  - Gait disturbance [None]
  - Confusional state [None]
  - Therapy interrupted [None]

NARRATIVE: CASE EVENT DATE: 20240815
